FAERS Safety Report 24986888 (Version 1)
Quarter: 2025Q1

REPORT INFORMATION
  Report Type: Spontaneous
  Country: AU (occurrence: AU)
  Receive Date: 20250219
  Receipt Date: 20250219
  Transmission Date: 20250409
  Serious: No
  Sender: TOLMAR
  Company Number: AU-TOLMAR, INC.-25AU056310

PATIENT
  Sex: Male

DRUGS (9)
  1. ELIGARD [Suspect]
     Active Substance: LEUPROLIDE ACETATE
     Indication: Prostate cancer
     Dosage: 22.5 MILLIGRAM, Q 3 MONTH
     Route: 058
  2. ELIGARD [Suspect]
     Active Substance: LEUPROLIDE ACETATE
     Indication: Prostate cancer
  3. UNSPECIFIED INGREDIENT [Concomitant]
     Active Substance: UNSPECIFIED INGREDIENT
     Indication: Product used for unknown indication
     Dosage: 500 MILLIGRAM, QID
  4. ELISA [Concomitant]
     Indication: Product used for unknown indication
     Dosage: 100 MILLIGRAM, QD
  5. PERISET [ONDANSETRON] [Concomitant]
     Indication: Product used for unknown indication
     Dosage: 8 MILLIGRAM, QD
  6. MYELAX [Concomitant]
     Indication: Product used for unknown indication
     Dosage: 50 MILLIGRAM, QD
  7. UNSPECIFIED INGREDIENT [Concomitant]
     Active Substance: UNSPECIFIED INGREDIENT
     Indication: Product used for unknown indication
  8. TELPRES [Concomitant]
     Indication: Product used for unknown indication
     Dosage: 40 MILLIGRAM, QD
  9. PREGABALIN [Concomitant]
     Active Substance: PREGABALIN
     Indication: Product used for unknown indication

REACTIONS (2)
  - Arthritis [Unknown]
  - Therapy change [Unknown]
